FAERS Safety Report 12376568 (Version 2)
Quarter: 2016Q2

REPORT INFORMATION
  Report Type: Report from Study
  Country: US (occurrence: US)
  Receive Date: 20160517
  Receipt Date: 20160517
  Transmission Date: 20160815
  Serious: No
  Sender: FDA-Public Use
  Company Number: US-MALLINCKRODT-T201502380

PATIENT
  Sex: Female
  Weight: 136 kg

DRUGS (1)
  1. REPOSITORY CORTICOTROPIN INJECTION [Suspect]
     Active Substance: CORTICOTROPIN
     Indication: RHEUMATOID ARTHRITIS
     Dosage: 80 IU, TWICE WEEKLY
     Route: 058
     Dates: start: 20131029, end: 201501

REACTIONS (3)
  - Weight increased [Unknown]
  - Increased appetite [Recovered/Resolved]
  - Renal failure [Not Recovered/Not Resolved]
